FAERS Safety Report 22588585 (Version 1)
Quarter: 2023Q2

REPORT INFORMATION
  Report Type: Other
  Country: None (occurrence: US)
  Receive Date: 20230612
  Receipt Date: 20230612
  Transmission Date: 20230721
  Serious: Yes (Hospitalization)
  Sender: FDA-Public Use
  Company Number: US-B.Braun Medical Inc.-2142573

PATIENT
  Age: 65 Year
  Sex: Female

DRUGS (3)
  1. BUPIVACAINE HYDROCHLORIDE WITH DEXTROSE [Suspect]
     Active Substance: BUPIVACAINE HYDROCHLORIDE
     Indication: Sedation
  2. LIDOCAINE [Suspect]
     Active Substance: LIDOCAINE
  3. HYALURONIDASE [Suspect]
     Active Substance: HYALURONIDASE

REACTIONS (2)
  - Off label use [Recovering/Resolving]
  - Purtscher retinopathy [Recovering/Resolving]
